FAERS Safety Report 11916111 (Version 2)
Quarter: 2016Q1

REPORT INFORMATION
  Report Type: Spontaneous
  Country: CH (occurrence: CH)
  Receive Date: 20160114
  Receipt Date: 20160128
  Transmission Date: 20160526
  Serious: Yes (Other)
  Sender: FDA-Public Use
  Company Number: CH-SUN PHARMACEUTICAL INDUSTRIES LTD-2015RR-109539

PATIENT

DRUGS (7)
  1. ELOXATIN [Suspect]
     Active Substance: OXALIPLATIN
     Dosage: 100 MG/M2, UNK
     Route: 065
  2. 5 - FLUOROURACIL [Suspect]
     Active Substance: FLUOROURACIL
     Indication: ADENOCARCINOMA PANCREAS
     Dosage: UNK
     Route: 065
  3. FOLINIC ACID [Concomitant]
     Active Substance: LEUCOVORIN
     Indication: ADENOCARCINOMA PANCREAS
     Dosage: UNK
     Route: 065
  4. ELOXATIN [Suspect]
     Active Substance: OXALIPLATIN
     Indication: ADENOCARCINOMA PANCREAS
     Dosage: UNK
     Route: 065
  5. RALTITREXED [Concomitant]
     Active Substance: RALTITREXED
     Indication: ADENOCARCINOMA PANCREAS
     Dosage: 2.75 MG/M2, UNK
     Route: 065
  6. IRINOTECAN [Concomitant]
     Active Substance: IRINOTECAN
     Dosage: 220 MG/M2, UNK
     Route: 065
  7. IRINOTECAN [Concomitant]
     Active Substance: IRINOTECAN
     Indication: ADENOCARCINOMA PANCREAS
     Dosage: UNK
     Route: 065

REACTIONS (2)
  - Arteriospasm coronary [Recovered/Resolved]
  - Peripheral sensory neuropathy [Unknown]
